FAERS Safety Report 5638921-4 (Version None)
Quarter: 2008Q1

REPORT INFORMATION
  Report Type: 
  Country: None (occurrence: None)
  Receive Date: 20080225
  Receipt Date: 20080225
  Transmission Date: 20080703
  Serious: No
  Sender: FDA-Public Use
  Company Number: None

PATIENT
  Sex: Male
  Weight: 82.1011 kg

DRUGS (1)
  1. AVENTYL    LILLY [Suspect]
     Indication: PAIN
     Dosage: 1 NIGHTLY BUCCAL  (DURATION: 3 NIGHTS)
     Route: 002

REACTIONS (4)
  - CONVULSION [None]
  - LACERATION [None]
  - TONGUE DISORDER [None]
  - TOOTH FRACTURE [None]
